FAERS Safety Report 4819346-8 (Version None)
Quarter: 2005Q4

REPORT INFORMATION
  Report Type: 
  Country: None (occurrence: None)
  Receive Date: 20051031
  Receipt Date: 20050809
  Transmission Date: 20060501
  Serious: No
  Sender: FDA-Public Use
  Company Number: 2005PV001013

PATIENT
  Age: 65 Year
  Sex: Female
  Weight: 133.3575 kg

DRUGS (9)
  1. SYMLIN [Suspect]
     Indication: DIABETES MELLITUS NON-INSULIN-DEPENDENT
     Dosage: 120 MCG; TID; SC
     Route: 058
  2. LIPITOR [Concomitant]
  3. NIASPAN [Concomitant]
  4. LASIX [Concomitant]
  5. CAPTOPRIL [Concomitant]
  6. POTASSIUM [Concomitant]
  7. HUMALOG MIX 75/25 [Concomitant]
  8. GLUCOPHAGE [Concomitant]
  9. AVANDIA [Concomitant]

REACTIONS (2)
  - DECREASED APPETITE [None]
  - WEIGHT DECREASED [None]
